FAERS Safety Report 25865695 (Version 1)
Quarter: 2025Q3

REPORT INFORMATION
  Report Type: Spontaneous
  Country: US (occurrence: US)
  Receive Date: 20250930
  Receipt Date: 20250930
  Transmission Date: 20251021
  Serious: No
  Sender: HERON
  Company Number: US-HERON THERAPEUTICS, INC-HRTX-2025-001094

PATIENT
  Age: 76 Year
  Sex: Male

DRUGS (4)
  1. ZYNRELEF [Suspect]
     Active Substance: BUPIVACAINE\MELOXICAM
     Indication: Postoperative analgesia
     Dates: start: 20250612, end: 20250612
  2. ZYNRELEF [Suspect]
     Active Substance: BUPIVACAINE\MELOXICAM
     Indication: Hip arthroplasty
  3. CHLOROPROCAINE [Concomitant]
     Active Substance: CHLOROPROCAINE
     Indication: Spinal anaesthesia
  4. CHLOROPROCAINE [Concomitant]
     Active Substance: CHLOROPROCAINE
     Indication: Hip arthroplasty

REACTIONS (1)
  - Femoral nerve palsy [Recovered/Resolved]

NARRATIVE: CASE EVENT DATE: 20250612
